FAERS Safety Report 7059940-X (Version None)
Quarter: 2010Q4

REPORT INFORMATION
  Report Type: 
  Country: None (occurrence: None)
  Receive Date: 20101025
  Receipt Date: 20101014
  Transmission Date: 20110411
  Serious: Yes (Hospitalization)
  Sender: FDA-Public Use
  Company Number: AR-TEVA-249636ISR

PATIENT
  Sex: Male
  Weight: 78 kg

DRUGS (3)
  1. RASAGILINE MESYLATE [Suspect]
     Indication: PARKINSON'S DISEASE
     Route: 048
     Dates: start: 20100119, end: 20100920
  2. RASAGILINE MESYLATE [Suspect]
     Route: 048
     Dates: start: 20060816, end: 20071227
  3. PRAMIPEXOLE [Concomitant]
     Indication: PARKINSON'S DISEASE
     Route: 048
     Dates: start: 20100716, end: 20100801

REACTIONS (3)
  - ANAEMIA [None]
  - ASTHENIA [None]
  - OEDEMA PERIPHERAL [None]
